FAERS Safety Report 6550516-7 (Version None)
Quarter: 2010Q1

REPORT INFORMATION
  Report Type: 
  Country: None (occurrence: None)
  Receive Date: 20100125
  Receipt Date: 20100119
  Transmission Date: 20100710
  Serious: Yes (Hospitalization)
  Sender: FDA-Public Use
  Company Number: B0623549A

PATIENT
  Sex: Male
  Weight: 95 kg

DRUGS (5)
  1. PAZOPANIB [Suspect]
     Indication: SARCOMA
     Dosage: 800MG PER DAY
     Route: 048
     Dates: start: 20091204
  2. NEXIUM [Concomitant]
     Dosage: 20MG PER DAY
     Route: 048
  3. KETOPROFEN [Concomitant]
     Dosage: 100MG THREE TIMES PER DAY
     Route: 048
  4. DAFALGAN [Concomitant]
     Dosage: 500MG FOUR TIMES PER DAY
     Route: 048
  5. TOPALGIC ( FRANCE ) [Concomitant]
     Dosage: 100MG TWICE PER DAY
     Route: 048

REACTIONS (1)
  - PNEUMOTHORAX [None]
